FAERS Safety Report 14438304 (Version 11)
Quarter: 2021Q2

REPORT INFORMATION
  Report Type: Spontaneous
  Country: US (occurrence: US)
  Receive Date: 20180125
  Receipt Date: 20210528
  Transmission Date: 20210716
  Serious: No
  Sender: FDA-Public Use
  Company Number: US-PFIZER INC-2018030914

PATIENT
  Age: 65 Year
  Sex: Female
  Weight: 100 kg

DRUGS (13)
  1. VITAMIN B6 [Concomitant]
     Active Substance: PYRIDOXINE HYDROCHLORIDE
     Indication: ARTHRITIS
     Dosage: 200 MG
  2. IBRANCE [Suspect]
     Active Substance: PALBOCICLIB
     Dosage: 125 MG
     Dates: start: 20170121
  3. IBRANCE [Suspect]
     Active Substance: PALBOCICLIB
     Dosage: 125 MG, CYCLIC (ONCE A DAY 21DAYS ON AND 7 DAYS OFF)
     Dates: start: 201702
  4. NEXIUM 24HR [Concomitant]
     Active Substance: ESOMEPRAZOLE MAGNESIUM
     Indication: VOMITING
     Dosage: UNK, DAILY
     Dates: start: 2016
  5. NEXIUM 24HR [Concomitant]
     Active Substance: ESOMEPRAZOLE MAGNESIUM
     Indication: GASTROOESOPHAGEAL REFLUX DISEASE
  6. ANASTROZOLE. [Concomitant]
     Active Substance: ANASTROZOLE
     Indication: NEOPLASM MALIGNANT
     Dosage: 1 MG, 1X/DAY
     Dates: start: 201702
  7. ALEVE [Concomitant]
     Active Substance: NAPROXEN SODIUM
     Indication: ARTHRALGIA
     Dosage: 2 DF, AS NEEDED (TAKES 2 PILLS AT ONCE TAKES WHEN NEEDED)
  8. IBRANCE [Suspect]
     Active Substance: PALBOCICLIB
     Dosage: 75 MG
     Dates: start: 2016
  9. IBRANCE [Suspect]
     Active Substance: PALBOCICLIB
     Dosage: 100 MG
     Dates: start: 2017
  10. IBRANCE [Suspect]
     Active Substance: PALBOCICLIB
     Dosage: 100 MG, CYCLIC (3 WEEKS 21 DAYS, THEN OFF 7 DAYS)
     Dates: start: 2017
  11. IBRANCE [Suspect]
     Active Substance: PALBOCICLIB
     Dosage: 100 MG, CYCLIC (ONCE A DAY FOR 21 DAYS, OFF FOR 7 DAYS)
     Dates: start: 20210226
  12. IBRANCE [Suspect]
     Active Substance: PALBOCICLIB
     Dosage: 100 MG
  13. IBRANCE [Suspect]
     Active Substance: PALBOCICLIB
     Indication: BREAST CANCER FEMALE
     Dosage: 125 MG
     Dates: start: 2015

REACTIONS (23)
  - Ageusia [Recovering/Resolving]
  - Neoplasm progression [Unknown]
  - Arthralgia [Unknown]
  - Nerve compression [Unknown]
  - Nail discolouration [Recovering/Resolving]
  - Dysgeusia [Recovering/Resolving]
  - Breast disorder [Unknown]
  - Tremor [Unknown]
  - Cognitive disorder [Recovering/Resolving]
  - Weight fluctuation [Unknown]
  - Ocular vascular disorder [Recovering/Resolving]
  - Trichorrhexis [Not Recovered/Not Resolved]
  - Product packaging issue [Unknown]
  - Blister [Not Recovered/Not Resolved]
  - Vision blurred [Not Recovered/Not Resolved]
  - Nail disorder [Recovering/Resolving]
  - Cough [Unknown]
  - Infection [Unknown]
  - Trigger finger [Unknown]
  - Neutrophil count decreased [Unknown]
  - Asthenia [Unknown]
  - Alopecia [Not Recovered/Not Resolved]
  - Onychalgia [Unknown]

NARRATIVE: CASE EVENT DATE: 2015
